FAERS Safety Report 5664620-9 (Version None)
Quarter: 2008Q1

REPORT INFORMATION
  Report Type: 
  Country: None (occurrence: None)
  Receive Date: 20080314
  Receipt Date: 20080307
  Transmission Date: 20080703
  Serious: No
  Sender: FDA-Public Use
  Company Number: US-BAXTER-2008BH002057

PATIENT
  Sex: Female

DRUGS (1)
  1. HEPARIN SODIUM [Suspect]
     Indication: DRUG USE FOR UNKNOWN INDICATION
     Dosage: DOSE UNIT:UNKNOWN
     Route: 065

REACTIONS (7)
  - APNOEA [None]
  - CARDIAC ARREST [None]
  - DYSPNOEA [None]
  - HEART RATE DECREASED [None]
  - LABORATORY TEST ABNORMAL [None]
  - NAUSEA [None]
  - VOMITING [None]
